FAERS Safety Report 8261325-5 (Version None)
Quarter: 2012Q2

REPORT INFORMATION
  Report Type: 
  Country: None (occurrence: None)
  Receive Date: 20120405
  Receipt Date: 20120323
  Transmission Date: 20120825
  Serious: Yes (Hospitalization, Other)
  Sender: FDA-Public Use
  Company Number: JP-CELGENEUS-087-50794-11091188

PATIENT
  Sex: Female
  Weight: 40 kg

DRUGS (14)
  1. VIDAZA [Suspect]
     Dosage: 75 MILLIGRAM/SQ. METER
     Route: 058
     Dates: start: 20110415, end: 20110415
  2. VIDAZA [Suspect]
     Dosage: 75 MILLIGRAM/SQ. METER
     Route: 041
     Dates: start: 20110416, end: 20110421
  3. SEFIROM [Concomitant]
     Route: 065
     Dates: start: 20110414, end: 20110416
  4. NEOISCOTIN [Concomitant]
     Route: 065
     Dates: start: 20110415, end: 20110524
  5. ANOPROLIN [Concomitant]
     Route: 065
     Dates: start: 20110414, end: 20110420
  6. BACTRIM [Concomitant]
     Route: 065
     Dates: start: 20110420, end: 20110615
  7. FRANDOL S [Concomitant]
     Route: 065
     Dates: start: 20110414
  8. BROACT [Concomitant]
     Route: 065
     Dates: start: 20110416, end: 20110423
  9. MINOCYCLINE HCL [Concomitant]
     Route: 065
     Dates: start: 20110416, end: 20110423
  10. LANSOPRAZOLE [Concomitant]
     Route: 065
     Dates: start: 20110414, end: 20110507
  11. LEVOFLOXACIN [Concomitant]
     Route: 065
     Dates: start: 20110414, end: 20110416
  12. FUROSEMIDE [Concomitant]
     Route: 065
     Dates: start: 20110416, end: 20110425
  13. PYDOXAL [Concomitant]
     Route: 065
     Dates: start: 20110415, end: 20110524
  14. FUROSEMIDE [Concomitant]
     Route: 065
     Dates: start: 20110426, end: 20110615

REACTIONS (7)
  - BLOOD CREATININE INCREASED [None]
  - WHITE BLOOD CELL COUNT DECREASED [None]
  - OEDEMA [None]
  - PLATELET COUNT DECREASED [None]
  - BLOOD POTASSIUM ABNORMAL [None]
  - C-REACTIVE PROTEIN INCREASED [None]
  - ERYTHEMA [None]
